FAERS Safety Report 15410133 (Version 8)
Quarter: 2019Q2

REPORT INFORMATION
  Report Type: Spontaneous
  Country: PL (occurrence: PL)
  Receive Date: 20180921
  Receipt Date: 20190516
  Transmission Date: 20190711
  Serious: Yes (Hospitalization, Other)
  Sender: FDA-Public Use
  Company Number: PL-AUROBINDO-AUR-APL-2018-046611

PATIENT

DRUGS (3)
  1. TRAMADOL. [Suspect]
     Active Substance: TRAMADOL
     Indication: PRODUCT USED FOR UNKNOWN INDICATION
     Dosage: 750 MILLIGRAM, DAILY
     Route: 065
  2. PREGABALIN. [Suspect]
     Active Substance: PREGABALIN
     Indication: MIXED ANXIETY AND DEPRESSIVE DISORDER
     Dosage: 3000 MILLIGRAM, DAILY (3000 MG, QD)
     Route: 065
  3. DEXAMETHASONE. [Concomitant]
     Active Substance: DEXAMETHASONE
     Indication: PRODUCT USED FOR UNKNOWN INDICATION
     Dosage: UNK, 1 TOTAL
     Route: 065

REACTIONS (21)
  - Drug abuse [Unknown]
  - Sleep disorder [Unknown]
  - Initial insomnia [Unknown]
  - Mixed anxiety and depressive disorder [Unknown]
  - Mental disorder [Unknown]
  - Anxiety [Unknown]
  - Withdrawal syndrome [Unknown]
  - Insomnia [Unknown]
  - Drug withdrawal syndrome [Unknown]
  - Diarrhoea [Unknown]
  - Overdose [Unknown]
  - Drug dependence [Unknown]
  - Treatment noncompliance [Unknown]
  - Depressed mood [Unknown]
  - Premature delivery [Unknown]
  - Tremor [Unknown]
  - Exposure during pregnancy [Unknown]
  - Dyspnoea [Unknown]
  - Abdominal pain [Unknown]
  - Depression [Unknown]
  - Intentional overdose [Unknown]
